FAERS Safety Report 5306946-4 (Version None)
Quarter: 2007Q1

REPORT INFORMATION
  Report Type: 
  Country: None (occurrence: None)
  Receive Date: 20070201
  Receipt Date: 20061206
  Transmission Date: 20070707
  Serious: No
  Sender: FDA-Public Use
  Company Number: 2006PV026392

PATIENT
  Age: 63 Year
  Sex: Female
  Weight: 117.9352 kg

DRUGS (3)
  1. BYETTA [Suspect]
     Indication: DIABETES MELLITUS NON-INSULIN-DEPENDENT
     Dosage: 5 MCG;BID;SC
     Route: 058
     Dates: start: 20060701
  2. GLUCOPHAGE [Concomitant]
  3. BETA BLOCKER [Concomitant]

REACTIONS (7)
  - BLOOD CREATININE INCREASED [None]
  - BLOOD UREA INCREASED [None]
  - DEHYDRATION [None]
  - GLOMERULAR FILTRATION RATE DECREASED [None]
  - HEART RATE IRREGULAR [None]
  - NAUSEA [None]
  - WEIGHT DECREASED [None]
